FAERS Safety Report 8023955-5 (Version None)
Quarter: 2012Q1

REPORT INFORMATION
  Report Type: 
  Country: None (occurrence: None)
  Receive Date: 20120105
  Receipt Date: 20111230
  Transmission Date: 20120608
  Serious: Yes (Hospitalization, Other)
  Sender: FDA-Public Use
  Company Number: FR-PFIZER INC-2011316752

PATIENT
  Age: 77 Year
  Sex: Female

DRUGS (15)
  1. TRAMADOL HCL [Suspect]
     Dosage: 100 MG, 2X/DAY
     Route: 048
     Dates: start: 20111110, end: 20111116
  2. RISPERDAL [Suspect]
     Dosage: 1 MG DAILY
     Route: 048
     Dates: end: 20111116
  3. PERINDOPRIL ERBUMINE [Suspect]
     Indication: HYPERTENSION
     Dosage: 5 MG, 1X/DAY
     Route: 048
     Dates: start: 20111110, end: 20111116
  4. SERTRALINE [Concomitant]
     Dosage: 50 MG, 1X/DAY
     Dates: end: 20111110
  5. PENTOXIFYLLINE [Concomitant]
  6. LOVENOX [Suspect]
     Indication: THROMBOSIS PROPHYLAXIS
     Dosage: 0.7 ML, 2X/DAY
     Route: 058
     Dates: start: 20111110, end: 20111116
  7. RISPERDAL [Suspect]
     Dosage: UNK
     Dates: start: 20111124
  8. TRAMADOL HCL [Concomitant]
     Dosage: 100 MG, 2X/DAY
  9. PARACETAMOL [Suspect]
     Dosage: UNK
     Route: 048
     Dates: start: 20111112, end: 20111116
  10. ZOLOFT [Suspect]
     Indication: DEPRESSION
     Dosage: 50 MG, 1X/DAY
     Route: 048
     Dates: start: 20111110, end: 20111116
  11. PARACETAMOL [Suspect]
     Dosage: 1G DAILY
     Route: 042
     Dates: start: 20111110, end: 20111111
  12. TANGANIL [Concomitant]
     Dosage: UNK
  13. NICARDIPINE HCL [Concomitant]
     Dosage: 20 MG, 1X/DAY
  14. PERINDOPRIL [Concomitant]
     Dosage: 40 MG, 1X/DAY
     Dates: end: 20111110
  15. LASIX [Concomitant]
     Dosage: 40 MG, IN THE MORNING

REACTIONS (12)
  - RETROPERITONEAL HAEMATOMA [None]
  - HYPOTENSION [None]
  - ABDOMINAL PAIN [None]
  - ATRIAL FIBRILLATION [None]
  - RENAL FAILURE ACUTE [None]
  - PLATELET COUNT DECREASED [None]
  - HAEMOGLOBIN DECREASED [None]
  - HAEMATOMA [None]
  - METABOLIC ACIDOSIS [None]
  - SHOCK HAEMORRHAGIC [None]
  - BILIARY CYST [None]
  - TACHYARRHYTHMIA [None]
